FAERS Safety Report 5246757-1 (Version None)
Quarter: 2007Q1

REPORT INFORMATION
  Report Type: 
  Country: None (occurrence: None)
  Receive Date: 20070220
  Receipt Date: 20070206
  Transmission Date: 20070707
  Serious: Yes (Other)
  Sender: FDA-Public Use
  Company Number: MEDI-0005266

PATIENT
  Age: 63 Year
  Sex: Male
  Weight: 121.564 kg

DRUGS (8)
  1. ETHYOL [Suspect]
     Indication: ADENOCARCINOMA
     Dosage: 500 MG, 1 IN 1 D, SUBCUTANEOUS
     Route: 058
     Dates: start: 20061128, end: 20061205
  2. ETHYOL [Suspect]
     Indication: ADENOCARCINOMA
     Dosage: 500 MG, 1 IN 1 D, SUBCUTANEOUS
     Route: 058
     Dates: start: 20061206, end: 20061229
  3. TRIAMTERENE AND HYDROCHLOROTHIAZIDE (HYDROCHLOROTHIAZIDE, TRIAMTERENE) [Concomitant]
  4. LORAZEPAM [Concomitant]
  5. ACETAMINOPHEN AND OXYCODONE HCL [Concomitant]
  6. ALLEGRA [Concomitant]
  7. KYTRIL [Concomitant]
  8. RADIATION THERAPY [Concomitant]

REACTIONS (14)
  - ANXIETY [None]
  - ARTHRALGIA [None]
  - BLISTER [None]
  - DECREASED APPETITE [None]
  - DERMATITIS EXFOLIATIVE [None]
  - DIARRHOEA [None]
  - ERYTHEMA [None]
  - MALAISE [None]
  - NAUSEA [None]
  - PHARYNGOLARYNGEAL PAIN [None]
  - PRURITUS [None]
  - RASH GENERALISED [None]
  - SWELLING FACE [None]
  - VOMITING [None]
